FAERS Safety Report 10606991 (Version 1)
Quarter: 2014Q4

REPORT INFORMATION
  Report Type: Spontaneous
  Country: US (occurrence: None)
  Receive Date: 20141124
  Receipt Date: 20141124
  Transmission Date: 20150529
  Serious: Yes (Hospitalization)
  Sender: FDA-Public Use
  Company Number: None

PATIENT
  Age: 85 Year
  Sex: Female

DRUGS (12)
  1. FLUTICASONE NASAL SPRAY [Concomitant]
     Active Substance: FLUTICASONE\FLUTICASONE PROPIONATE
  2. HEAPARIN [Concomitant]
  3. HYDRALAZINE IV [Concomitant]
  4. LYRICA [Concomitant]
     Active Substance: PREGABALIN
  5. LISINOPRIL 10MG QUALITEST [Suspect]
     Active Substance: LISINOPRIL
     Dosage: 1 PILL BID ORAL
     Route: 048
     Dates: start: 20140703, end: 20140704
  6. MVI [Concomitant]
     Active Substance: VITAMINS
  7. ASPIRIN. [Concomitant]
     Active Substance: ASPIRIN
  8. LEVOTHYROXINE 100MCG [Concomitant]
     Active Substance: LEVOTHYROXINE
  9. HUMULIN 70/30 [Concomitant]
     Active Substance: INSULIN HUMAN
  10. HYDROCODONE/APAP 5/325 [Concomitant]
  11. HUMALOG SSI [Concomitant]
  12. VITA A+D OINT [Concomitant]

REACTIONS (2)
  - Swollen tongue [None]
  - Retching [None]

NARRATIVE: CASE EVENT DATE: 20140704
